FAERS Safety Report 4527573-2 (Version None)
Quarter: 2004Q4

REPORT INFORMATION
  Report Type: 
  Country: None (occurrence: None)
  Receive Date: 20041124
  Receipt Date: 20041018
  Transmission Date: 20050328
  Serious: Yes (Life-Threatening)
  Sender: FDA-Public Use
  Company Number: 238566

PATIENT
  Age: 71 Year
  Sex: Male

DRUGS (2)
  1. NOVOLOG MIX 70/30 [Suspect]
     Indication: INSULIN-REQUIRING TYPE II DIABETES MELLITUS
     Dosage: 52 IU, BID, SUBCUTANEOUS
     Route: 058
     Dates: start: 20040809, end: 20040809
  2. NOVOPEN (INSULIN DELIVERY DEVICE) [Concomitant]

REACTIONS (1)
  - HYPOGLYCAEMIC COMA [None]
